FAERS Safety Report 10936277 (Version 1)
Quarter: 2015Q1

REPORT INFORMATION
  Report Type: Spontaneous
  Country: US (occurrence: None)
  Receive Date: 20150319
  Receipt Date: 20150319
  Transmission Date: 20150721
  Serious: Yes (Hospitalization, Other)
  Sender: FDA-Public Use
  Company Number: None

PATIENT
  Sex: Male

DRUGS (2)
  1. GENERIC WELLBUTRIN BUPROPRION [Suspect]
     Active Substance: BUPROPION HYDROCHLORIDE
     Indication: DEPRESSION
     Dosage: AM ORAL
     Route: 048
     Dates: start: 2012
  2. GENERIC WELLBUTRIN BUPROPRION [Suspect]
     Active Substance: BUPROPION HYDROCHLORIDE
     Indication: ANXIETY
     Dosage: AM ORAL
     Route: 048
     Dates: start: 2012

REACTIONS (3)
  - Duodenitis [None]
  - Condition aggravated [None]
  - Gastrooesophageal reflux disease [None]

NARRATIVE: CASE EVENT DATE: 20150219
